FAERS Safety Report 6998380-6 (Version None)
Quarter: 2010Q3

REPORT INFORMATION
  Report Type: 
  Country: None (occurrence: None)
  Receive Date: 20100920
  Receipt Date: 20100907
  Transmission Date: 20110219
  Serious: Yes (Hospitalization)
  Sender: FDA-Public Use
  Company Number: US-JNJFOC-20100602167

PATIENT
  Sex: Male
  Weight: 34.9 kg

DRUGS (4)
  1. INFLIXIMAB [Suspect]
     Indication: INFLAMMATORY BOWEL DISEASE
     Route: 042
  2. 5-AMINOSALICYLIC ACID [Concomitant]
     Route: 048
  3. PREVACID [Concomitant]
  4. MULTI-VITAMINS [Concomitant]

REACTIONS (2)
  - DEPRESSION [None]
  - HEADACHE [None]
